FAERS Safety Report 11198389 (Version 1)
Quarter: 2015Q2

REPORT INFORMATION
  Report Type: Spontaneous
  Country: SG (occurrence: None)
  Receive Date: 20150615
  Receipt Date: 20150615
  Transmission Date: 20150821
  Serious: Yes (Hospitalization, Disabling)
  Sender: FDA-Public Use
  Company Number: None

PATIENT
  Age: 40 Year
  Sex: Male
  Weight: 77 kg

DRUGS (1)
  1. STELARA [Suspect]
     Active Substance: USTEKINUMAB
     Dosage: EVERY 12 WEEKS, GIVEN INTO/UNDER THE SKIN

REACTIONS (3)
  - Influenza [None]
  - Psoriasis [None]
  - Drug ineffective [None]

NARRATIVE: CASE EVENT DATE: 20150605
